FAERS Safety Report 7365906-2 (Version None)
Quarter: 2011Q1

REPORT INFORMATION
  Report Type: 
  Country: None (occurrence: None)
  Receive Date: 20110316
  Receipt Date: 20110316
  Transmission Date: 20110831
  Serious: No
  Sender: FDA-Public Use
  Company Number: None

PATIENT
  Sex: Female
  Weight: 48.4 kg

DRUGS (5)
  1. DEXAMETHASONE [Suspect]
     Dosage: 98 MG
     Dates: end: 20110313
  2. METHOTREXATE [Suspect]
     Dosage: 15 MG
     Dates: end: 20110307
  3. DOXORUBICIN HCL [Suspect]
     Dosage: 68 MG
     Dates: end: 20110314
  4. VINCRISTINE SULFATE [Suspect]
     Dosage: 4 MG
     Dates: end: 20110314
  5. PEG-L ASPARAGINASE (PEGASPARGASE, ONCOSPAR) [Suspect]
     Dosage: 3325 MG
     Dates: end: 20110310

REACTIONS (1)
  - BLOOD GLUCOSE INCREASED [None]
